FAERS Safety Report 9615320 (Version 1)
Quarter: 2013Q4

REPORT INFORMATION
  Report Type: Spontaneous
  Country: US (occurrence: None)
  Receive Date: 20131010
  Receipt Date: 20131010
  Transmission Date: 20140711
  Serious: Yes (Other)
  Sender: FDA-Public Use
  Company Number: None

PATIENT
  Age: 62 Year
  Sex: Male
  Weight: 68.04 kg

DRUGS (3)
  1. FLEXERIL [Suspect]
     Indication: BACK PAIN
     Route: 048
     Dates: start: 20130911, end: 20130918
  2. PAXIL [Concomitant]
  3. LIPITOR [Concomitant]

REACTIONS (1)
  - Amnesia [None]
